FAERS Safety Report 4300683-0 (Version None)
Quarter: 2004Q1

REPORT INFORMATION
  Report Type: 
  Country: None (occurrence: None)
  Receive Date: 20040218
  Receipt Date: 20040129
  Transmission Date: 20041129
  Serious: Yes (Death)
  Sender: FDA-Public Use
  Company Number: US_031299142

PATIENT
  Age: 73 Year
  Sex: Male

DRUGS (1)
  1. GEMCITABINE HYDROCHLORIDE-IV (GEMCITABINE) [Suspect]
     Indication: METASTATIC CARCINOMA OF THE BLADDER
     Dosage: 1580 MG

REACTIONS (6)
  - BLOOD LACTATE DEHYDROGENASE INCREASED [None]
  - DRUG ERUPTION [None]
  - FEBRILE NEUTROPENIA [None]
  - LETHARGY [None]
  - PYREXIA [None]
  - TOXIC EPIDERMAL NECROLYSIS [None]
